FAERS Safety Report 7132058-3 (Version None)
Quarter: 2010Q4

REPORT INFORMATION
  Report Type: 
  Country: None (occurrence: None)
  Receive Date: 20101202
  Receipt Date: 20101118
  Transmission Date: 20110411
  Serious: Yes (Hospitalization, Other)
  Sender: FDA-Public Use
  Company Number: PHHY2010MX78706

PATIENT
  Sex: Female

DRUGS (1)
  1. RASILEZ HCT [Suspect]
     Indication: HYPERTENSION
     Dosage: 150/12.5 MG, 1 TABLET DAILY
     Route: 048
     Dates: start: 20100415, end: 20101111

REACTIONS (2)
  - BLOOD PRESSURE DECREASED [None]
  - LITHOTRIPSY [None]
